FAERS Safety Report 9186859 (Version 1)
Quarter: 2013Q1

REPORT INFORMATION
  Report Type: Spontaneous
  Country: ES (occurrence: ES)
  Receive Date: 20130325
  Receipt Date: 20130325
  Transmission Date: 20140127
  Serious: Yes (Other)
  Sender: FDA-Public Use
  Company Number: ES-ELI_LILLY_AND_COMPANY-ES201303005060

PATIENT
  Age: 73 Year
  Sex: Female

DRUGS (1)
  1. XERISTAR [Suspect]
     Indication: DEPRESSION
     Dosage: 30 MG, QD
     Route: 048
     Dates: start: 201107, end: 201212

REACTIONS (2)
  - Emotional poverty [Recovered/Resolved]
  - Apathy [Recovered/Resolved]
